FAERS Safety Report 9176137 (Version 3)
Quarter: 2012Q4

REPORT INFORMATION
  Report Type: 
  Country: US (occurrence: US)
  Receive Date: 20120924
  Receipt Date: 20121219
  Transmission Date: 20130627
  Serious: Yes (Hospitalization, Other)
  Sender: FDA-Public Use
  Company Number: US-RB-044700-12

PATIENT
  Age: 28 None
  Sex: Male

DRUGS (1)
  1. SUBOXONE FILM [Suspect]
     Indication: DRUG DEPENDENCE
     Dosage: Suboxone film; 2.5 mg QD
     Route: 060
     Dates: start: 201104

REACTIONS (5)
  - Disorientation [Recovering/Resolving]
  - Confusional state [Recovering/Resolving]
  - Sleep attacks [Recovering/Resolving]
  - Altered state of consciousness [Recovering/Resolving]
  - Wrong technique in drug usage process [Not Recovered/Not Resolved]
